FAERS Safety Report 6301787-3 (Version None)
Quarter: 2009Q3

REPORT INFORMATION
  Report Type: 
  Country: None (occurrence: None)
  Receive Date: 20090807
  Receipt Date: 20090727
  Transmission Date: 20100115
  Serious: Yes (Other)
  Sender: FDA-Public Use
  Company Number: US-WYE-H10349709

PATIENT
  Age: 83 Year
  Sex: Female
  Weight: 59.02 kg

DRUGS (9)
  1. ADVIL [Suspect]
     Indication: BACK PAIN
     Dosage: 2 CAPLETS DAILY
     Route: 048
     Dates: start: 20090601, end: 20090701
  2. AVAPRO [Concomitant]
     Indication: HYPERTENSION
     Dosage: UNKNOWN
     Route: 048
  3. RECLAST [Concomitant]
     Indication: OSTEOPOROSIS
     Dosage: UNKNOWN
     Route: 042
  4. FUROSEMIDE [Suspect]
     Indication: DIURETIC THERAPY
     Dosage: UNKNOWN
     Route: 048
  5. KLOR-CON [Concomitant]
     Indication: BLOOD POTASSIUM DECREASED
     Dosage: 10 MEQ (FREQUENCY UNKNOWN)
     Route: 048
  6. HYDROCHLOROTHIAZIDE [Suspect]
     Indication: OEDEMA PERIPHERAL
     Dosage: UNKNOWN
     Route: 048
  7. HYDROCHLOROTHIAZIDE [Suspect]
     Indication: DIURETIC THERAPY
  8. DILTIAZEM [Concomitant]
     Dosage: UNKNOWN
     Route: 048
  9. LIPITOR [Concomitant]
     Indication: HYPERCHOLESTEROLAEMIA
     Dosage: UNKNOWN
     Route: 048

REACTIONS (10)
  - ABDOMINAL DISTENSION [None]
  - BREAST ENLARGEMENT [None]
  - CONTUSION [None]
  - DIPLOPIA [None]
  - FAT TISSUE INCREASED [None]
  - RASH [None]
  - RENAL FAILURE [None]
  - SWELLING FACE [None]
  - VISUAL IMPAIRMENT [None]
  - WEIGHT INCREASED [None]
